FAERS Safety Report 5425098-3 (Version None)
Quarter: 2007Q3

REPORT INFORMATION
  Report Type: 
  Country: None (occurrence: None)
  Receive Date: 20070824
  Receipt Date: 20070820
  Transmission Date: 20080115
  Serious: Yes (Death, Life-Threatening, Hospitalization)
  Sender: FDA-Public Use
  Company Number: JP-ASTRAZENECA-2007AP03942

PATIENT
  Age: 21721 Day
  Sex: Male

DRUGS (3)
  1. CRESTOR [Suspect]
     Indication: HYPERLIPIDAEMIA
     Route: 048
     Dates: start: 20061110, end: 20070602
  2. LIPITOR [Concomitant]
  3. PRAVASTATIN [Concomitant]

REACTIONS (8)
  - ANOREXIA [None]
  - APALLIC SYNDROME [None]
  - ASCITES [None]
  - DEATH [None]
  - DISSEMINATED INTRAVASCULAR COAGULATION [None]
  - HEPATIC FUNCTION ABNORMAL [None]
  - MALAISE [None]
  - PLEURAL EFFUSION [None]
